FAERS Safety Report 4366864-5 (Version None)
Quarter: 2004Q2

REPORT INFORMATION
  Report Type: 
  Country: None (occurrence: None)
  Receive Date: 20040524
  Receipt Date: 20031223
  Transmission Date: 20050107
  Serious: Yes (Other)
  Sender: FDA-Public Use
  Company Number: 2004-05-1408

PATIENT
  Sex: Female

DRUGS (3)
  1. PEG-INTRON [Suspect]
     Dosage: 150 MCG QWK SUBCUTANEOUS
     Route: 058
  2. REBETOL [Suspect]
     Dosage: 1200 MG QD ORAL
     Route: 048
  3. AMANTADINE HCL [Suspect]
     Dosage: 200 MG QD

REACTIONS (2)
  - FRACTURE [None]
  - RIB FRACTURE [None]
